FAERS Safety Report 8818580 (Version 1)
Quarter: 2012Q4

REPORT INFORMATION
  Report Type: Spontaneous
  Country: US (occurrence: None)
  Receive Date: 20121004
  Receipt Date: 20121004
  Transmission Date: 20130627
  Serious: Yes (Life-Threatening)
  Sender: FDA-Public Use
  Company Number: None

PATIENT
  Sex: Male
  Weight: 63.96 kg

DRUGS (2)
  1. HYDROCODONE [Suspect]
     Dates: start: 2009, end: 2012
  2. IBUPROFEN [Suspect]

REACTIONS (3)
  - Dizziness [None]
  - Thirst [None]
  - Unevaluable event [None]
